FAERS Safety Report 16929027 (Version 4)
Quarter: 2020Q1

REPORT INFORMATION
  Report Type: Report from Study
  Country: US (occurrence: US)
  Receive Date: 20191017
  Receipt Date: 20200218
  Transmission Date: 20200409
  Serious: Yes (Other)
  Sender: FDA-Public Use
  Company Number: US-GLAXOSMITHKLINE-US2019TSO185951

PATIENT
  Age: 58 Year
  Sex: Female

DRUGS (2)
  1. NIRAPARIB [Suspect]
     Active Substance: NIRAPARIB
     Indication: OVARIAN CANCER
     Dosage: 100 MG, DAILY IN THE EVENING WITH OR WITHOUT FOOD
     Route: 048
     Dates: start: 20190925
  2. GABAPENTIN. [Concomitant]
     Active Substance: GABAPENTIN
     Indication: NEUROPATHY PERIPHERAL

REACTIONS (6)
  - Neuropathy peripheral [Not Recovered/Not Resolved]
  - Muscle contracture [Unknown]
  - Underdose [Unknown]
  - Seizure [Unknown]
  - Metastases to central nervous system [Unknown]
  - Muscle spasms [Unknown]

NARRATIVE: CASE EVENT DATE: 201909
